FAERS Safety Report 4838223-X (Version None)
Quarter: 2005Q4

REPORT INFORMATION
  Report Type: 
  Country: None (occurrence: None)
  Receive Date: 20051128
  Receipt Date: 20051012
  Transmission Date: 20060501
  Serious: Yes (Disabling)
  Sender: FDA-Public Use
  Company Number: US-MERCK-0510USA06846

PATIENT
  Age: 57 Year
  Sex: Male

DRUGS (3)
  1. ZOCOR [Suspect]
     Indication: HYPERCHOLESTEROLAEMIA
     Route: 048
     Dates: start: 20041228, end: 20050701
  2. NORVASC [Concomitant]
     Route: 065
  3. ALTACE [Concomitant]
     Route: 065

REACTIONS (3)
  - HEADACHE [None]
  - MYOPATHY [None]
  - VISION BLURRED [None]
